FAERS Safety Report 4501857-6 (Version None)
Quarter: 2004Q4

REPORT INFORMATION
  Report Type: 
  Country: None (occurrence: None)
  Receive Date: 20041116
  Receipt Date: 20041019
  Transmission Date: 20050328
  Serious: Yes (Hospitalization)
  Sender: FDA-Public Use
  Company Number: JP-JNJFOC-20041006095

PATIENT
  Age: 95 Year
  Sex: Female

DRUGS (16)
  1. OXYBUTYNIN HYDROCHLORIDE [Suspect]
     Indication: DRUG USE FOR UNKNOWN INDICATION
     Route: 049
  2. NERIPROCT [Concomitant]
  3. NERIPROCT [Concomitant]
  4. LAC-B [Concomitant]
  5. BESACOLIN [Concomitant]
  6. ABOVIS [Concomitant]
  7. GASMOTIN [Concomitant]
  8. PANTOSIN [Concomitant]
  9. LAXOBERON [Concomitant]
  10. MAGNESIUM OXIDE [Concomitant]
  11. DAIOU [Concomitant]
  12. VAGOSTIGMIN [Concomitant]
  13. PREDONINE [Concomitant]
  14. SILECE [Concomitant]
  15. LENDORMIN [Concomitant]
  16. RIZE [Concomitant]

REACTIONS (3)
  - LACRIMATION INCREASED [None]
  - PULMONARY EMBOLISM [None]
  - PULMONARY INFARCTION [None]
